FAERS Safety Report 6810959-0 (Version None)
Quarter: 2010Q2

REPORT INFORMATION
  Report Type: 
  Country: None (occurrence: None)
  Receive Date: 20100630
  Receipt Date: 20080707
  Transmission Date: 20101027
  Serious: No
  Sender: FDA-Public Use
  Company Number: US-PFIZER INC-2008057017

PATIENT
  Sex: Male
  Weight: 79.545 kg

DRUGS (1)
  1. NICOTROL [Suspect]
     Indication: SMOKING CESSATION THERAPY
     Dates: start: 20080701, end: 20080701

REACTIONS (2)
  - MEDICATION ERROR [None]
  - RASH [None]
